FAERS Safety Report 7679497-X (Version None)
Quarter: 2011Q3

REPORT INFORMATION
  Report Type: 
  Country: None (occurrence: None)
  Receive Date: 20110812
  Receipt Date: 20110812
  Transmission Date: 20111222
  Serious: Yes (Hospitalization, Other)
  Sender: FDA-Public Use
  Company Number: None

PATIENT
  Age: 73 Year
  Sex: Female
  Weight: 110.67 kg

DRUGS (1)
  1. MOVIPREP [Suspect]
     Indication: COLONOSCOPY
     Dosage: SPLIT DOSE 64 OUNCES 1/2 NIGHT
     Route: 048
     Dates: start: 20110328, end: 20110329

REACTIONS (12)
  - EAR PAIN [None]
  - PAIN OF SKIN [None]
  - MUSCLE SPASMS [None]
  - DYSGEUSIA [None]
  - ERUCTATION [None]
  - IMPAIRED DRIVING ABILITY [None]
  - FATIGUE [None]
  - OEDEMA PERIPHERAL [None]
  - SWELLING [None]
  - PAIN IN EXTREMITY [None]
  - PAIN [None]
  - DEAFNESS UNILATERAL [None]
